FAERS Safety Report 10695965 (Version 2)
Quarter: 2015Q1

REPORT INFORMATION
  Report Type: Spontaneous
  Country: US (occurrence: None)
  Receive Date: 20141223
  Receipt Date: 20150326
  Transmission Date: 20150721
  Serious: No
  Sender: FDA-Public Use
  Company Number: 1000072776

PATIENT
  Age: 37 Year
  Sex: Male

DRUGS (4)
  1. DEPAKOTE (VALPROATE SEMIDOSIUM) [Concomitant]
  2. METFORMIN [Concomitant]
     Active Substance: METFORMIN HYDROCHLORIDE
  3. HYDROCODONE [Concomitant]
     Active Substance: HYDROCODONE
  4. LINZESS [Suspect]
     Active Substance: LINACLOTIDE
     Indication: CONSTIPATION
     Dates: start: 201411, end: 201411

REACTIONS (1)
  - Diarrhoea [None]

NARRATIVE: CASE EVENT DATE: 201411
